FAERS Safety Report 10023327 (Version 2)
Quarter: 2014Q1

REPORT INFORMATION
  Report Type: Spontaneous
  Country: HK (occurrence: HK)
  Receive Date: 20140320
  Receipt Date: 20140327
  Transmission Date: 20141002
  Serious: Yes (Death)
  Sender: FDA-Public Use
  Company Number: HK-MERCK-1403HKG007378

PATIENT
  Age: 61 Year
  Sex: Male

DRUGS (4)
  1. POSACONAZOLE [Suspect]
     Indication: FUNGAL INFECTION
     Route: 048
  2. POSACONAZOLE [Suspect]
     Indication: SALVAGE THERAPY
  3. AMPHOTERICIN B (+) CHOLESTEROL (+) DISTEAROYLPHOSPHATIDYLGLYCEROL (+) [Suspect]
     Indication: FUNGAL INFECTION
  4. AMPHOTERICIN B (+) CHOLESTEROL (+) DISTEAROYLPHOSPHATIDYLGLYCEROL (+) [Suspect]
     Indication: SALVAGE THERAPY

REACTIONS (2)
  - Fungal infection [Fatal]
  - Drug ineffective [Fatal]
